FAERS Safety Report 10922185 (Version 1)
Quarter: 2015Q1

REPORT INFORMATION
  Report Type: Spontaneous
  Country: US (occurrence: US)
  Receive Date: 20150317
  Receipt Date: 20150317
  Transmission Date: 20150721
  Serious: No
  Sender: FDA-Public Use
  Company Number: US-GLAXOSMITHKLINE-US2015010614

PATIENT
  Age: 48 Year
  Sex: Male

DRUGS (1)
  1. NICODERM CQ [Suspect]
     Active Substance: NICOTINE
     Indication: SMOKING CESSATION THERAPY
     Dosage: 21 MG, UNK
     Dates: start: 20150126, end: 20150126

REACTIONS (4)
  - Application site pain [Not Recovered/Not Resolved]
  - Application site reaction [Not Recovered/Not Resolved]
  - Expired product administered [Unknown]
  - Application site papules [Not Recovered/Not Resolved]
